FAERS Safety Report 12811251 (Version 1)
Quarter: 2016Q4

REPORT INFORMATION
  Report Type: Spontaneous
  Country: US (occurrence: US)
  Receive Date: 20161004
  Receipt Date: 20161004
  Transmission Date: 20170207
  Serious: Yes (Disabling)
  Sender: FDA-Public Use
  Company Number: None

PATIENT
  Age: 10 Year
  Sex: Male
  Weight: 45 kg

DRUGS (5)
  1. ACID BLOCKER [Concomitant]
  2. MELATONIN [Concomitant]
     Active Substance: MELATONIN
  3. ASTHMA MEDS [Concomitant]
  4. BABY TEETHING (HYLAND HOMEOPATHIC) [Suspect]
     Active Substance: HOMEOPATHICS
     Indication: TEETHING
  5. ANXIETY MED [Concomitant]

REACTIONS (1)
  - Seizure [None]
